FAERS Safety Report 5717642-3 (Version None)
Quarter: 2008Q2

REPORT INFORMATION
  Report Type: 
  Country: None (occurrence: None)
  Receive Date: 20080425
  Receipt Date: 20080415
  Transmission Date: 20081010
  Serious: Yes (Hospitalization, Other)
  Sender: FDA-Public Use
  Company Number: US-ROCHE-521373

PATIENT
  Sex: Male
  Weight: 73.5 kg

DRUGS (5)
  1. ACCUTANE [Suspect]
     Indication: ACNE
     Dosage: FREQ: QOD
     Route: 048
     Dates: start: 19880407, end: 19880615
  2. ACCUTANE [Suspect]
     Dosage: TAKEN MON-FRI
     Route: 048
     Dates: start: 19880615, end: 19880725
  3. ACCUTANE [Suspect]
     Route: 048
     Dates: start: 19880725
  4. ACCUTANE [Suspect]
     Dosage: BID DOSING FOR 2 WEEKS
     Route: 048
  5. ACCUTANE [Suspect]
     Route: 048
     Dates: start: 19890103, end: 19890203

REACTIONS (8)
  - CROHN'S DISEASE [None]
  - INFLAMMATORY BOWEL DISEASE [None]
  - INTESTINAL FISTULA [None]
  - MALABSORPTION [None]
  - MENISCUS LESION [None]
  - PANIC ATTACK [None]
  - SKIN PAPILLOMA [None]
  - SMALL INTESTINAL OBSTRUCTION [None]
